FAERS Safety Report 21786167 (Version 1)
Quarter: 2022Q4

REPORT INFORMATION
  Report Type: Other
  Country: US (occurrence: None)
  Receive Date: 20221228
  Receipt Date: 20221228
  Transmission Date: 20230113
  Serious: Yes (Other)
  Sender: FDA-Public Use
  Company Number: US-Saptalis Pharmaceuticals,LLC-000324

PATIENT
  Age: 93 Year
  Sex: Female

DRUGS (8)
  1. TRIAMCINOLONE [Suspect]
     Active Substance: TRIAMCINOLONE
     Indication: Necrotising scleritis
     Dosage: 40 MG/ML IN 0.3 ML
  2. VANCOMYCIN [Suspect]
     Active Substance: VANCOMYCIN
     Indication: Vitritis
  3. CEFTAZIDIME [Suspect]
     Active Substance: CEFTAZIDIME
     Indication: Necrotising scleritis
     Dosage: TOPICAL, FOUR TIMES DAILY
  4. LEVOFLOXACIN [Suspect]
     Active Substance: LEVOFLOXACIN
     Indication: Necrotising scleritis
     Dosage: 500 MG DAILY
     Route: 048
  5. PREDNISOLONE ACETATE [Suspect]
     Active Substance: PREDNISOLONE ACETATE
     Indication: Necrotising scleritis
     Dosage: 1% FOUR TIMES DAILY
  6. TOBRAMYCIN [Suspect]
     Active Substance: TOBRAMYCIN
     Indication: Vitritis
     Dosage: ALTERNATING EVERY HOUR
  7. CEFTAZIDIME [Suspect]
     Active Substance: CEFTAZIDIME
     Indication: Vitritis
  8. VANCOMYCIN [Suspect]
     Active Substance: VANCOMYCIN
     Indication: Vitritis
     Dosage: TOPICAL, ALTERNATING EVERY HOUR

REACTIONS (1)
  - Scleromalacia [Not Recovered/Not Resolved]
